FAERS Safety Report 4284005-X (Version None)
Quarter: 2004Q1

REPORT INFORMATION
  Report Type: 
  Country: None (occurrence: None)
  Receive Date: 20040130
  Receipt Date: 20040113
  Transmission Date: 20041129
  Serious: Yes (Other)
  Sender: FDA-Public Use
  Company Number: US_040199944

PATIENT
  Age: 70 Year
  Sex: Female
  Weight: 120 kg

DRUGS (1)
  1. HUMULIN 70/30 [Suspect]
     Indication: DIABETES MELLITUS
     Dosage: 85 U/DAY

REACTIONS (2)
  - CARDIAC FAILURE CONGESTIVE [None]
  - TRANSPLANT [None]
